FAERS Safety Report 11460271 (Version 2)
Quarter: 2015Q3

REPORT INFORMATION
  Report Type: Report from Study
  Country: HU (occurrence: HU)
  Receive Date: 20150904
  Receipt Date: 20150924
  Transmission Date: 20151125
  Serious: Yes (Death, Hospitalization)
  Sender: FDA-Public Use
  Company Number: HU-BAYER-2015-400773

PATIENT
  Age: 59 Year
  Sex: Female
  Weight: 56 kg

DRUGS (5)
  1. STIVARGA [Suspect]
     Active Substance: REGORAFENIB
     Indication: COLORECTAL CANCER METASTATIC
     Dosage: 40 MG, QID
     Route: 048
     Dates: start: 20150813, end: 20150821
  2. VITAMIN D3 [Concomitant]
     Active Substance: CHOLECALCIFEROL
  3. CAVINTON [Concomitant]
     Active Substance: VINPOCETINE
  4. INDOMETHACIN. [Concomitant]
     Active Substance: INDOMETHACIN
  5. QUAMATEL [Concomitant]

REACTIONS (7)
  - Somnolence [None]
  - Colorectal cancer metastatic [Fatal]
  - Unresponsive to stimuli [None]
  - Hepatic enzyme increased [None]
  - Oropharyngeal pain [None]
  - Decreased appetite [None]
  - Back pain [None]

NARRATIVE: CASE EVENT DATE: 2015
